FAERS Safety Report 6522039-2 (Version None)
Quarter: 2009Q4

REPORT INFORMATION
  Report Type: 
  Country: None (occurrence: None)
  Receive Date: 20091230
  Receipt Date: 20091111
  Transmission Date: 20100525
  Serious: Yes (Hospitalization)
  Sender: FDA-Public Use
  Company Number: TR-SANOFI-AVENTIS-2009SA003786

PATIENT
  Age: 30 Year
  Sex: Female
  Weight: 62 kg

DRUGS (3)
  1. KETEK [Suspect]
     Route: 048
  2. KETEK [Suspect]
     Route: 048
  3. VOLTAREN [Concomitant]
     Indication: PAIN
     Route: 048
     Dates: start: 20091029, end: 20091102

REACTIONS (5)
  - HEPATITIS TOXIC [None]
  - LIVER FUNCTION TEST ABNORMAL [None]
  - NAUSEA [None]
  - VERTIGO [None]
  - VOMITING [None]
